FAERS Safety Report 9502751 (Version 2)
Quarter: 2013Q3

REPORT INFORMATION
  Report Type: Report from Study
  Country: US (occurrence: US)
  Receive Date: 20130226
  Receipt Date: 20130906
  Transmission Date: 20140515
  Serious: Yes (Disabling, Other)
  Sender: FDA-Public Use
  Company Number: PHEH2012US022174

PATIENT
  Age: 61 Year
  Sex: Male

DRUGS (25)
  1. TOBI [Suspect]
     Indication: CYSTIC FIBROSIS
     Dosage: 5 ML, BID (TWICE DAILY)
  2. TOBI [Suspect]
     Dosage: 180 MG, Q12H
     Dates: start: 19990809, end: 19990813
  3. TOBI [Suspect]
     Dosage: 300 MG, Q12H
     Dates: start: 20090808, end: 20090903
  4. TOBI [Suspect]
     Dosage: 270 MG, Q12H
     Dates: start: 20100328, end: 20100414
  5. TOBI [Suspect]
     Dosage: 850 MG, QD
     Dates: start: 20100506, end: 20100514
  6. TOBI [Suspect]
     Dosage: 850 MG, QD
     Dates: start: 20110523, end: 20110606
  7. TOBI [Suspect]
     Dosage: 850 MG, QD
     Dates: start: 20120123, end: 20120203
  8. TOBI [Suspect]
     Dosage: 850 MG, QD
     Dates: start: 20120318, end: 20120327
  9. TOBI [Suspect]
     Dosage: 300 MG, BID
  10. ALBUTEROL [Concomitant]
     Indication: DYSPNOEA
     Dosage: 2.5 MG, PRN
  11. ALPRAZOLAM [Concomitant]
     Dosage: 0.5 MG, 3 YIMES A DAY
     Route: 048
  12. AQUADEKS [Concomitant]
     Dosage: 2 DF, QD
  13. CHLOORTALIDON [Concomitant]
     Dosage: 25 MG, QD
     Route: 048
  14. COLACE [Concomitant]
     Dosage: 100 MG, TID
  15. DORNASE ALFA [Concomitant]
     Dosage: 2.5 MG, QD
  16. FLUTICASONE PROPIONATE [Concomitant]
     Dosage: 220 UG, BID
     Route: 048
  17. LANTUS [Concomitant]
     Dosage: 100 UNK, EVERY MORNING
     Route: 058
  18. METHADONE [Concomitant]
     Dosage: 10 MG, UNK
     Route: 048
  19. OMEPRAZOLE [Concomitant]
     Dosage: 20 MG, BID
     Route: 048
  20. POLYETHYLENE GLYCOL [Concomitant]
     Dosage: 17 G, QD
  21. VENTOLIN HFA [Concomitant]
     Indication: DYSPNOEA
     Dosage: 2 PUFFS
  22. VITAMIN D2 [Concomitant]
     Dosage: UNITS
  23. ZENPEP [Concomitant]
     Dosage: 7 DF, 5 WITH MEALS AND 2 WITH SNACKS
  24. TOBRAMYCIN [Concomitant]
  25. CIPROFLOXACIN [Concomitant]

REACTIONS (6)
  - Deafness [Not Recovered/Not Resolved]
  - Gait disturbance [Unknown]
  - Red blood cell sedimentation rate increased [Unknown]
  - Blood glucose increased [Unknown]
  - Bronchiectasis [Unknown]
  - Nausea [Unknown]
